FAERS Safety Report 6497614-4 (Version None)
Quarter: 2009Q4

REPORT INFORMATION
  Report Type: 
  Country: None (occurrence: None)
  Receive Date: 20091215
  Receipt Date: 20091201
  Transmission Date: 20100525
  Serious: Yes (Other)
  Sender: FDA-Public Use
  Company Number: US-ASTRAZENECA-2009SE27821

PATIENT
  Age: 44 Year
  Sex: Female

DRUGS (1)
  1. SYMBICORT [Suspect]
     Indication: DYSPNOEA
     Dosage: 160/4.5, 2 PUFFS
     Route: 055
     Dates: start: 20090819

REACTIONS (2)
  - CHEST PAIN [None]
  - DYSPNOEA [None]
